FAERS Safety Report 14559832 (Version 1)
Quarter: 2018Q1

REPORT INFORMATION
  Report Type: Spontaneous
  Country: US (occurrence: US)
  Receive Date: 20180220
  Receipt Date: 20180220
  Transmission Date: 20180509
  Serious: Yes (Other)
  Sender: FDA-Public Use
  Company Number: None

PATIENT
  Age: 47 Year
  Sex: Male
  Weight: 99 kg

DRUGS (1)
  1. TESTOSTERONE CYPIONATE. [Suspect]
     Active Substance: TESTOSTERONE CYPIONATE
     Indication: BLOOD TESTOSTERONE DECREASED
     Dosage: QUANTITY:5 INJECTION(S);OTHER FREQUENCY:ONCE PER WEEK;OTHER ROUTE:INJECTED INTO BUTTOCK?
     Dates: start: 20170501, end: 20180216

REACTIONS (4)
  - Pruritus [None]
  - Anaphylactic shock [None]
  - Drug ineffective [None]
  - Panic attack [None]

NARRATIVE: CASE EVENT DATE: 20170501
